FAERS Safety Report 4808427-0 (Version None)
Quarter: 2005Q4

REPORT INFORMATION
  Report Type: 
  Country: None (occurrence: None)
  Receive Date: 20051021
  Receipt Date: 20050121
  Transmission Date: 20060501
  Serious: Yes (Hospitalization)
  Sender: FDA-Public Use
  Company Number: EWC050142358

PATIENT
  Age: 42 Year
  Sex: Male
  Weight: 106 kg

DRUGS (3)
  1. ZYPREXA [Suspect]
     Indication: BIPOLAR I DISORDER
     Dosage: 30 MG DAY
     Dates: start: 20041030
  2. DEPAKENE [Concomitant]
  3. ZOLDEM (ZOLPIDEM TARTRATE) [Concomitant]

REACTIONS (6)
  - ACQUIRED DIAPHRAGMATIC EVENTRATION [None]
  - CEREBRAL CYST [None]
  - HEPATOSPLENOMEGALY [None]
  - PLEURAL EFFUSION [None]
  - PRESCRIBED OVERDOSE [None]
  - PULMONARY EMBOLISM [None]
